FAERS Safety Report 14115897 (Version 2)
Quarter: 2017Q4

REPORT INFORMATION
  Report Type: Spontaneous
  Country: LV (occurrence: LV)
  Receive Date: 20171023
  Receipt Date: 20171107
  Transmission Date: 20180321
  Serious: Yes (Other)
  Sender: FDA-Public Use
  Company Number: LV-MYLANLABS-2017M1065618

PATIENT
  Age: 2 Year
  Sex: Male

DRUGS (1)
  1. KLACID 125 MG/5 ML SUSP [Suspect]
     Active Substance: CLARITHROMYCIN
     Indication: TONSILLITIS
     Dosage: 5 ML, BID
     Route: 048
     Dates: start: 20171004, end: 20171005

REACTIONS (4)
  - Eating disorder [Recovered/Resolved]
  - Oral discomfort [Recovered/Resolved]
  - Apathy [None]
  - Feeling abnormal [Recovered/Resolved]

NARRATIVE: CASE EVENT DATE: 20171004
